FAERS Safety Report 18667340 (Version 1)
Quarter: 2020Q4

REPORT INFORMATION
  Report Type: Spontaneous
  Country: US (occurrence: US)
  Receive Date: 20201228
  Receipt Date: 20201228
  Transmission Date: 20210114
  Serious: Yes (Hospitalization)
  Sender: FDA-Public Use
  Company Number: US-ROCHE-2737145

PATIENT
  Age: 60 Year
  Sex: Female

DRUGS (7)
  1. TOPIRAMATE. [Concomitant]
     Active Substance: TOPIRAMATE
  2. DICLOFENAC [Concomitant]
     Active Substance: DICLOFENAC
  3. WIXELA INHUB [Concomitant]
     Active Substance: FLUTICASONE PROPIONATE\SALMETEROL XINAFOATE
  4. LIDOCAINE. [Concomitant]
     Active Substance: LIDOCAINE
  5. TRIAMTERENE. [Concomitant]
     Active Substance: TRIAMTERENE
  6. ESBRIET [Suspect]
     Active Substance: PIRFENIDONE
     Indication: IDIOPATHIC PULMONARY FIBROSIS
     Dosage: TAKING ONE TABLET DAILY INSTEAD OF THREE
     Route: 065
  7. ESBRIET [Suspect]
     Active Substance: PIRFENIDONE
     Indication: IDIOPATHIC PULMONARY FIBROSIS
     Dosage: ONE CAPSULE, THREE TIMES DAILY, ONGOING: YES
     Route: 048
     Dates: start: 20191009

REACTIONS (2)
  - Lung disorder [Unknown]
  - Wrong dose [Unknown]

NARRATIVE: CASE EVENT DATE: 20201204
